FAERS Safety Report 8599656-1 (Version None)
Quarter: 2012Q3

REPORT INFORMATION
  Report Type: 
  Country: None (occurrence: None)
  Receive Date: 20120816
  Receipt Date: 20120809
  Transmission Date: 20120928
  Serious: No
  Sender: FDA-Public Use
  Company Number: US-ASTRAZENECA-2012SE50355

PATIENT
  Age: 54 Year
  Sex: Female

DRUGS (8)
  1. PULMICORT FLEXHALER [Suspect]
     Indication: ASTHMA
     Route: 055
     Dates: start: 20120501
  2. VISTARIL [Concomitant]
  3. FLUTICASONE PROPIONATE [Concomitant]
  4. VERAPAMIL [Concomitant]
  5. PREMARIN [Concomitant]
  6. EPIPEN [Concomitant]
  7. PROTONIX [Concomitant]
  8. ATROVENT [Concomitant]

REACTIONS (1)
  - DYSPNOEA [None]
